FAERS Safety Report 9057786 (Version 1)
Quarter: 2013Q1

REPORT INFORMATION
  Report Type: Spontaneous
  Country: US (occurrence: None)
  Receive Date: 20130204
  Receipt Date: 20130204
  Transmission Date: 20140127
  Serious: No
  Sender: FDA-Public Use
  Company Number: None

PATIENT
  Age: 50 Year
  Sex: Male
  Weight: 108.9 kg

DRUGS (1)
  1. MORPHINE SULFATE [Suspect]
     Route: 042
     Dates: start: 20120818, end: 20120818

REACTIONS (2)
  - Dyspnoea [None]
  - Muscle spasms [None]
